FAERS Safety Report 21314377 (Version 1)
Quarter: 2022Q3

REPORT INFORMATION
  Report Type: Spontaneous
  Country: US (occurrence: None)
  Receive Date: 20220909
  Receipt Date: 20220909
  Transmission Date: 20221027
  Serious: No
  Sender: FDA-Public Use
  Company Number: US-ARIS GLOBAL-202110-1834

PATIENT
  Sex: Female

DRUGS (18)
  1. OXERVATE [Suspect]
     Active Substance: CENEGERMIN-BKBJ
     Indication: Neurotrophic keratopathy
     Route: 047
     Dates: start: 20211004
  2. OXERVATE [Suspect]
     Active Substance: CENEGERMIN-BKBJ
     Indication: Neurotrophic keratopathy
  3. SYSTANE (HYPROMELLOSE 2910 (4000 MPA.S)) [Concomitant]
     Active Substance: HYPROMELLOSE 2910 (4000 MPA.S)
     Dosage: 0.3 %-0.4% DROPS
  4. DIETARY SUPPLEMENT [Concomitant]
     Active Substance: DIETARY SUPPLEMENT
  5. IRON [Concomitant]
     Active Substance: IRON
     Dosage: 160(50) MG TABLET
  6. VITAMIN B12 [Concomitant]
     Active Substance: CYANOCOBALAMIN
     Dosage: 250 MCG LOZENGE
  7. DIGESTIVE ADVANTAGE INT BOWEL [Concomitant]
  8. CALCIUM 600-D3 PLUS [Concomitant]
  9. FISH OIL [Concomitant]
     Active Substance: FISH OIL
     Dosage: 40-60 MG-10 CAPSULE
  10. MULTI-VITAMIN DAILY TABLET [Concomitant]
  11. ESTRADIOL [Concomitant]
     Active Substance: ESTRADIOL
  12. MONTELUKAST SODIUM [Concomitant]
     Active Substance: MONTELUKAST SODIUM
  13. FUROSEMIDE [Concomitant]
     Active Substance: FUROSEMIDE
  14. MELOXICAM [Concomitant]
     Active Substance: MELOXICAM
  15. METHOTREXATE [Concomitant]
     Active Substance: METHOTREXATE
  16. ADVAIR DISKUS [Concomitant]
     Active Substance: FLUTICASONE PROPIONATE\SALMETEROL XINAFOATE
     Dosage: 500-50 MCG BLST W/DEV
  17. PANTOPRAZOLE SODIUM [Concomitant]
     Active Substance: PANTOPRAZOLE SODIUM
     Dosage: DELAYED RELEASE
  18. BUTALBITAL-ACETAMINOPHEN-CAFFE [Concomitant]

REACTIONS (1)
  - Eye pain [Unknown]
